FAERS Safety Report 8018153-5 (Version None)
Quarter: 2012Q1

REPORT INFORMATION
  Report Type: 
  Country: None (occurrence: None)
  Receive Date: 20120103
  Receipt Date: 20111230
  Transmission Date: 20120608
  Serious: Yes (Other)
  Sender: FDA-Public Use
  Company Number: US-JNJFOC-20111011060

PATIENT
  Sex: Female
  Weight: 181.44 kg

DRUGS (1)
  1. LEVAQUIN [Suspect]
     Indication: INFECTION
     Route: 048
     Dates: start: 20091201, end: 20091225

REACTIONS (6)
  - LIGAMENT SPRAIN [None]
  - PRODUCT QUALITY ISSUE [None]
  - GOUT [None]
  - BEDRIDDEN [None]
  - ARTHRALGIA [None]
  - PAIN [None]
